FAERS Safety Report 21914868 (Version 3)
Quarter: 2024Q2

REPORT INFORMATION
  Report Type: Spontaneous
  Country: BR (occurrence: BR)
  Receive Date: 20230126
  Receipt Date: 20240625
  Transmission Date: 20240716
  Serious: Yes (Hospitalization, Other)
  Sender: FDA-Public Use
  Company Number: BR-ABBVIE-4282154

PATIENT
  Age: 13 Year
  Sex: Male
  Weight: 72 kg

DRUGS (2)
  1. HUMIRA [Suspect]
     Active Substance: ADALIMUMAB
     Indication: Product used for unknown indication
     Route: 058
     Dates: start: 202203, end: 202208
  2. HUMIRA [Suspect]
     Active Substance: ADALIMUMAB
     Route: 058
     Dates: start: 2022

REACTIONS (18)
  - Leukaemia [Unknown]
  - Electrocardiogram ST segment abnormal [Unknown]
  - Anaemia [Not Recovered/Not Resolved]
  - Heart rate increased [Not Recovered/Not Resolved]
  - Congenital aplasia [Not Recovered/Not Resolved]
  - Respiratory disorder [Unknown]
  - Dysplasia [Recovered/Resolved]
  - Platelet count decreased [Unknown]
  - Sinusitis [Unknown]
  - Hyperplasia [Recovered/Resolved]
  - Pallor [Unknown]
  - Red blood cell count decreased [Not Recovered/Not Resolved]
  - Haemoglobin abnormal [Unknown]
  - Haematoma [Recovered/Resolved]
  - Red blood cell abnormality [Unknown]
  - Weight decreased [Unknown]
  - Product administered at inappropriate site [Unknown]
  - Immunodeficiency [Unknown]

NARRATIVE: CASE EVENT DATE: 20220401
